FAERS Safety Report 4814589-1 (Version None)
Quarter: 2005Q4

REPORT INFORMATION
  Report Type: 
  Country: None (occurrence: None)
  Receive Date: 20051028
  Receipt Date: 20041209
  Transmission Date: 20060501
  Serious: Yes (Other)
  Sender: FDA-Public Use
  Company Number: US-GLAXOSMITHKLINE-A0536799A

PATIENT
  Age: 66 Year
  Sex: Female

DRUGS (12)
  1. ADVAIR DISKUS 100/50 [Suspect]
     Indication: ASTHMA
     Dosage: 1PUFF TWICE PER DAY
     Route: 055
     Dates: start: 20000101
  2. DIOVAN [Concomitant]
  3. NORVASC [Concomitant]
  4. UNKNOWN MEDICATION [Concomitant]
  5. HYDROCHLOROTHIAZIDE [Concomitant]
  6. PREVACID [Concomitant]
  7. CELEBREX [Concomitant]
  8. ALLEGRA [Concomitant]
  9. KLOR-CON [Concomitant]
  10. PREMARIN [Concomitant]
  11. FLONASE [Concomitant]
  12. LUMIGAN [Concomitant]

REACTIONS (4)
  - ASTHMA [None]
  - COUGH [None]
  - PHARMACEUTICAL PRODUCT COMPLAINT [None]
  - PRODUCTIVE COUGH [None]
